FAERS Safety Report 9646577 (Version 1)
Quarter: 2013Q4

REPORT INFORMATION
  Report Type: Spontaneous
  Country: US (occurrence: US)
  Receive Date: 20131025
  Receipt Date: 20131025
  Transmission Date: 20140711
  Serious: No
  Sender: FDA-Public Use
  Company Number: US-009507513-1310USA012045

PATIENT
  Sex: Male

DRUGS (1)
  1. MIRALAX [Suspect]
     Indication: BOWEL PREPARATION
     Dosage: 136 G, UNKNOWN
     Route: 048
     Dates: start: 20131017

REACTIONS (3)
  - Drug ineffective for unapproved indication [Unknown]
  - Overdose [Unknown]
  - Off label use [Unknown]
